FAERS Safety Report 6585550-4 (Version None)
Quarter: 2010Q1

REPORT INFORMATION
  Report Type: 
  Country: None (occurrence: None)
  Receive Date: 20100217
  Receipt Date: 20100209
  Transmission Date: 20100710
  Serious: Yes (Hospitalization)
  Sender: FDA-Public Use
  Company Number: US-B.I. PHARMACEUTICALS,INC./RIDGEFIELD-2010-BP-01588BP

PATIENT
  Age: 46 Year
  Sex: Male

DRUGS (1)
  1. FLOMAX [Suspect]
     Indication: NEPHROLITHIASIS
     Route: 048
     Dates: start: 20100129

REACTIONS (6)
  - DIZZINESS [None]
  - ISCHAEMIC STROKE [None]
  - LABYRINTHITIS [None]
  - NAUSEA [None]
  - VISUAL IMPAIRMENT [None]
  - VOMITING [None]
